FAERS Safety Report 11654864 (Version 1)
Quarter: 2015Q4

REPORT INFORMATION
  Report Type: Spontaneous
  Country: US (occurrence: US)
  Receive Date: 20151023
  Receipt Date: 20151023
  Transmission Date: 20160304
  Serious: Yes (Other)
  Sender: FDA-Public Use
  Company Number: US-BAYER-2015-448419

PATIENT
  Sex: Female

DRUGS (1)
  1. MIRENA [Suspect]
     Active Substance: LEVONORGESTREL
     Dosage: 20 MCG/24HR, CONT
     Route: 015
     Dates: start: 2006, end: 2014

REACTIONS (8)
  - Menorrhagia [None]
  - Device dislocation [None]
  - Discomfort [None]
  - Complication of device removal [None]
  - Device breakage [None]
  - Intentional device misuse [None]
  - Feeling abnormal [None]
  - Nephrolithiasis [None]

NARRATIVE: CASE EVENT DATE: 2011
